FAERS Safety Report 24642021 (Version 1)
Quarter: 2024Q4

REPORT INFORMATION
  Report Type: Spontaneous
  Country: US (occurrence: US)
  Receive Date: 20241120
  Receipt Date: 20241120
  Transmission Date: 20250114
  Serious: No
  Sender: BAYER HEALTHCARE LLC
  Company Number: US-BAYER-2024A161334

PATIENT

DRUGS (7)
  1. CLARITIN [Suspect]
     Active Substance: LORATADINE
     Indication: Nasal congestion
  2. CLARITIN [Suspect]
     Active Substance: LORATADINE
     Indication: Epistaxis
  3. CLARITIN [Suspect]
     Active Substance: LORATADINE
     Indication: Sinusitis
  4. CLARITIN [Suspect]
     Active Substance: LORATADINE
     Indication: Rhinorrhoea
  5. CLARITIN [Suspect]
     Active Substance: LORATADINE
     Indication: Throat irritation
  6. CLARITIN [Suspect]
     Active Substance: LORATADINE
     Indication: Eye pruritus
  7. CLARITIN [Suspect]
     Active Substance: LORATADINE
     Indication: Cough

REACTIONS (1)
  - Drug effective for unapproved indication [Unknown]
